FAERS Safety Report 8694528 (Version 2)
Quarter: 2012Q4

REPORT INFORMATION
  Report Type: 
  Country: JP (occurrence: JP)
  Receive Date: 20120731
  Receipt Date: 20120914
  Transmission Date: 20130627
  Serious: Yes (Other)
  Sender: FDA-Public Use
  Company Number: PHHY2012JP064601

PATIENT
  Age: 58 Year
  Sex: Male

DRUGS (4)
  1. FOLINIC ACID [Suspect]
     Indication: METASTASES TO LUNG
     Dates: start: 200304
  2. FLUOROURACIL [Suspect]
     Indication: METASTASES TO LUNG
     Dates: start: 200304
  3. OXALIPLATIN [Suspect]
     Indication: METASTASES TO LUNG
     Dates: start: 200304
  4. BEVACIZUMAB [Suspect]
     Indication: METASTASES TO LUNG
     Dates: start: 200304

REACTIONS (3)
  - Palmar-plantar erythrodysaesthesia syndrome [Unknown]
  - Paronychia [Unknown]
  - Hypertension [Unknown]
